FAERS Safety Report 25940993 (Version 2)
Quarter: 2025Q4

REPORT INFORMATION
  Report Type: Spontaneous
  Country: US (occurrence: None)
  Receive Date: 20251020
  Receipt Date: 20251029
  Transmission Date: 20260118
  Serious: No
  Sender: ALKERMES
  Company Number: US-ALKERMES INC.-ALK-2025-002708

PATIENT

DRUGS (2)
  1. VIVITROL [Suspect]
     Active Substance: NALTREXONE
     Indication: Product used for unknown indication
     Dosage: 380 MILLIGRAM, QMO
  2. VIVITROL [Suspect]
     Active Substance: NALTREXONE
     Dosage: 380 MILLIGRAM, QMO
     Dates: start: 20250923, end: 20250923

REACTIONS (1)
  - No adverse event [Recovered/Resolved]

NARRATIVE: CASE EVENT DATE: 20250923
